FAERS Safety Report 10379236 (Version 2)
Quarter: 2014Q3

REPORT INFORMATION
  Report Type: Spontaneous
  Country: US (occurrence: US)
  Receive Date: 20140812
  Receipt Date: 20140812
  Transmission Date: 20150326
  Serious: Yes (Other)
  Sender: FDA-Public Use
  Company Number: US-BRISTOL-MYERS SQUIBB COMPANY-19382753

PATIENT
  Age: 50 Year
  Sex: Female

DRUGS (4)
  1. EMTRICITABINE [Concomitant]
     Active Substance: EMTRICITABINE
  2. REYATAZ [Suspect]
     Active Substance: ATAZANAVIR SULFATE
     Indication: HIV INFECTION
     Route: 048
     Dates: start: 20091214, end: 20130904
  3. RITONAVIR [Concomitant]
     Active Substance: RITONAVIR
  4. TENOFOVIR [Concomitant]
     Active Substance: TENOFOVIR

REACTIONS (1)
  - Nephrolithiasis [Unknown]
